FAERS Safety Report 6430985-3 (Version None)
Quarter: 2009Q4

REPORT INFORMATION
  Report Type: 
  Country: None (occurrence: None)
  Receive Date: 20091105
  Receipt Date: 20091105
  Transmission Date: 20100525
  Serious: No
  Sender: FDA-Public Use
  Company Number: None

PATIENT
  Age: 59 Year
  Sex: Male
  Weight: 72 kg

DRUGS (1)
  1. AMPHOTERICIN B [Suspect]
     Indication: INFECTION
     Dosage: 70 MG EVERY DAY IV
     Route: 042
     Dates: start: 20080826, end: 20080826

REACTIONS (2)
  - CHILLS [None]
  - TACHYCARDIA [None]
